FAERS Safety Report 5147142-3 (Version None)
Quarter: 2006Q4

REPORT INFORMATION
  Report Type: 
  Country: None (occurrence: None)
  Receive Date: 20061103
  Receipt Date: 20061018
  Transmission Date: 20070319
  Serious: Yes (Other)
  Sender: FDA-Public Use
  Company Number: S06-UKI-04519-01

PATIENT
  Sex: Female

DRUGS (1)
  1. CITALOPRAM HYDROBROMIDE [Suspect]
     Dosage: 20 MG QD PO
     Route: 048
     Dates: start: 20060901, end: 20061016

REACTIONS (1)
  - IDIOPATHIC THROMBOCYTOPENIC PURPURA [None]
